FAERS Safety Report 24732729 (Version 1)
Quarter: 2024Q4

REPORT INFORMATION
  Report Type: Spontaneous
  Country: US (occurrence: None)
  Receive Date: 20241213
  Receipt Date: 20241213
  Transmission Date: 20250115
  Serious: Yes (unspecified)
  Sender: Public
  Company Number: None

PATIENT
  Age: 54 Year
  Sex: Male
  Weight: 175 kg

DRUGS (2)
  1. TRAZODONE HCL [Suspect]
     Active Substance: TRAZODONE HYDROCHLORIDE
     Indication: Sleep disorder
     Dosage: FREQUENCY : AT BEDTIME;?
     Route: 048
  2. SERTRALINE HYDROCHLORIDE [Suspect]
     Active Substance: SERTRALINE HYDROCHLORIDE
     Indication: Depression
     Dosage: FREQUENCY : AT BEDTIME;?
     Route: 048

REACTIONS (3)
  - Priapism [None]
  - Insomnia [None]
  - Cellulitis [None]

NARRATIVE: CASE EVENT DATE: 20240819
